FAERS Safety Report 6639205-8 (Version None)
Quarter: 2010Q1

REPORT INFORMATION
  Report Type: 
  Country: None (occurrence: None)
  Receive Date: 20100317
  Receipt Date: 20100305
  Transmission Date: 20100710
  Serious: Yes (Death)
  Sender: FDA-Public Use
  Company Number: JP-ABBOTT-10P-087-0627744-00

PATIENT
  Age: 84 Year
  Sex: Male

DRUGS (9)
  1. LEUPROLIDE ACETATE [Suspect]
     Indication: PROSTATE CANCER STAGE IV
     Route: 058
     Dates: start: 20080226, end: 20090707
  2. BICALUTAMIDE [Concomitant]
     Indication: PROSTATE CANCER STAGE IV
     Route: 048
     Dates: end: 20090120
  3. ZANTAC [Concomitant]
     Indication: GASTRIC ULCER
     Route: 048
  4. SERMION [Concomitant]
     Indication: CEREBRAL INFARCTION
     Route: 048
  5. ALOSENN [Concomitant]
     Indication: CONSTIPATION
     Route: 048
  6. ALSAZULENE [Concomitant]
     Indication: GASTRIC ULCER
     Route: 048
  7. ODYNE [Concomitant]
     Indication: PROSTATE CANCER STAGE IV
     Route: 048
     Dates: start: 20090121, end: 20090413
  8. CHLORMADINONE ACETATE TAB [Concomitant]
     Indication: PROSTATE CANCER STAGE IV
     Route: 048
     Dates: start: 20090707
  9. ESTRAMUSTINE PHOSPHATE SODIUM [Concomitant]
     Indication: PROSTATE CANCER STAGE IV
     Route: 048
     Dates: start: 20090414, end: 20090706

REACTIONS (1)
  - PROSTATE CANCER [None]
